FAERS Safety Report 10296443 (Version 2)
Quarter: 2014Q3

REPORT INFORMATION
  Report Type: Spontaneous
  Country: US (occurrence: None)
  Receive Date: 20140708
  Receipt Date: 20140819
  Transmission Date: 20150326
  Serious: Yes (Other)
  Sender: FDA-Public Use
  Company Number: AUR-APL-2014-06905

PATIENT
  Age: 69 Year
  Sex: Female

DRUGS (1)
  1. ACICLOVIR INJECTION [Suspect]
     Active Substance: ACYCLOVIR
     Indication: PRODUCT USED FOR UNKNOWN INDICATION
     Dosage: 750 MG, TWO TIMES A DAY, INTRAVENOUS
     Route: 042

REACTIONS (5)
  - Unresponsive to stimuli [None]
  - Myoclonus [None]
  - Neurotoxicity [None]
  - Haemodialysis [None]
  - Confusional state [None]
